FAERS Safety Report 9911483 (Version 1)
Quarter: 2014Q1

REPORT INFORMATION
  Report Type: Report from Study
  Country: FR (occurrence: FR)
  Receive Date: 20140219
  Receipt Date: 20140219
  Transmission Date: 20141002
  Serious: Yes (Hospitalization)
  Sender: FDA-Public Use
  Company Number: PHHY2014FR020194

PATIENT
  Age: 41 Year
  Sex: Male

DRUGS (5)
  1. MYCOPHENOLIC ACID [Suspect]
     Indication: PROPHYLAXIS AGAINST TRANSPLANT REJECTION
     Dosage: 1440 MG, QD
     Route: 048
     Dates: start: 20131115
  2. BACTRIM [Concomitant]
     Indication: INFECTION PROPHYLAXIS
     Dosage: 400 MG, QD
     Dates: start: 20131116
  3. ROVALCYTE [Concomitant]
     Indication: INFECTION PROPHYLAXIS
     Dosage: 900 MG, QD
     Dates: start: 20131116
  4. PROGRAF [Concomitant]
     Indication: PROPHYLAXIS AGAINST TRANSPLANT REJECTION
     Dosage: 10.5 MG, QD
     Dates: start: 20131118
  5. CORTANCYL [Concomitant]
     Indication: TRANSPLANT REJECTION
     Dosage: 20 MG, QD
     Dates: start: 20131114

REACTIONS (3)
  - Renal failure acute [Recovered/Resolved]
  - Dehydration [Recovered/Resolved]
  - Diarrhoea [Recovered/Resolved]
